FAERS Safety Report 6759725-5 (Version None)
Quarter: 2010Q2

REPORT INFORMATION
  Report Type: 
  Country: None (occurrence: None)
  Receive Date: 20100604
  Receipt Date: 20100520
  Transmission Date: 20101027
  Serious: Yes (Life-Threatening, Hospitalization)
  Sender: FDA-Public Use
  Company Number: 012898

PATIENT
  Age: 83 Year
  Sex: Female

DRUGS (8)
  1. ISOSORBIDE MONONITRATE [Suspect]
     Dosage: (1 DF ORAL)
     Route: 048
     Dates: start: 20100505, end: 20100506
  2. PANTOPRAZOLE [Concomitant]
  3. SIMVASTATIN [Concomitant]
  4. DILTIAZEM HYDROCHLORIDE [Concomitant]
  5. GLICLAZIDE [Concomitant]
  6. ASPIRIN  /01428701/ [Concomitant]
  7. LACTULOSE [Concomitant]
  8. SIMETHICONE [Concomitant]

REACTIONS (2)
  - DRUG INEFFECTIVE [None]
  - MEDICATION RESIDUE [None]
